FAERS Safety Report 24586458 (Version 1)
Quarter: 2024Q4

REPORT INFORMATION
  Report Type: Spontaneous
  Country: CN (occurrence: CN)
  Receive Date: 20241106
  Receipt Date: 20241106
  Transmission Date: 20250115
  Serious: Yes (Hospitalization, Other)
  Sender: BEIGENE
  Company Number: CN-BEIGENE-BGN-2024-017290

PATIENT

DRUGS (9)
  1. TISLELIZUMAB [Suspect]
     Active Substance: TISLELIZUMAB
     Indication: Bladder cancer
     Dosage: 200 MILLIGRAM
     Route: 041
     Dates: start: 20241012
  2. PACLITAXEL [Suspect]
     Active Substance: PACLITAXEL
     Indication: Bladder cancer
     Dosage: 30 MILLIGRAM
     Route: 041
     Dates: start: 20241012
  3. PACLITAXEL [Suspect]
     Active Substance: PACLITAXEL
     Dosage: 210 MILLIGRAM
     Route: 041
     Dates: start: 20241012
  4. SODIUM CHLORIDE [Concomitant]
     Active Substance: SODIUM CHLORIDE
     Indication: Vehicle solution use
     Dosage: 100 MILLILITER
     Route: 041
     Dates: start: 20241012
  5. SODIUM CHLORIDE [Concomitant]
     Active Substance: SODIUM CHLORIDE
     Dosage: 100 MILLILITER
     Route: 041
     Dates: start: 20241012
  6. SODIUM CHLORIDE [Concomitant]
     Active Substance: SODIUM CHLORIDE
     Dosage: 250 MILLILITER
     Route: 041
     Dates: start: 20241012
  7. DEXAMETHASONE [Concomitant]
     Active Substance: DEXAMETHASONE
     Indication: Antiallergic therapy
     Dosage: UNK
     Dates: start: 20241012
  8. DEXAMETHASONE [Concomitant]
     Active Substance: DEXAMETHASONE
     Indication: Gastrointestinal disorder prophylaxis
  9. DEXAMETHASONE [Concomitant]
     Active Substance: DEXAMETHASONE
     Indication: Antiemetic supportive care

REACTIONS (1)
  - Myelosuppression [Recovering/Resolving]

NARRATIVE: CASE EVENT DATE: 20241021
